FAERS Safety Report 6552781-9 (Version None)
Quarter: 2010Q1

REPORT INFORMATION
  Report Type: 
  Country: None (occurrence: None)
  Receive Date: 20100126
  Receipt Date: 20100120
  Transmission Date: 20100710
  Serious: Yes (Death)
  Sender: FDA-Public Use
  Company Number: US-GILEAD-2009-0025842

PATIENT
  Sex: Male
  Weight: 71.278 kg

DRUGS (17)
  1. LETAIRIS [Suspect]
     Indication: PORTOPULMONARY HYPERTENSION
     Route: 048
     Dates: start: 20090928
  2. AMLODIPINE BESYLATE [Concomitant]
  3. LOVENOX [Concomitant]
  4. LASIX [Concomitant]
  5. ASPIRIN [Concomitant]
  6. WARFARIN SODIUM [Concomitant]
  7. SPIRONOLACTONE [Concomitant]
  8. ISENTRESS [Concomitant]
  9. EPIVIR [Concomitant]
  10. VIRACEPT [Concomitant]
  11. SULFAMETHOXAZOLE AND TRIMETHOPRIM [Concomitant]
  12. CLONAZEPAM [Concomitant]
  13. LYRICA [Concomitant]
  14. HYDROCODONE BITARTRATE AND ACETAMINOPHEN [Concomitant]
  15. MICONAZOLE NITRATE [Concomitant]
  16. TRYPSIN [Concomitant]
  17. POTASSIUM CL [Concomitant]

REACTIONS (3)
  - HEPATIC NEOPLASM MALIGNANT [None]
  - PNEUMONIA [None]
  - SEPSIS [None]
